FAERS Safety Report 24316691 (Version 1)
Quarter: 2024Q3

REPORT INFORMATION
  Report Type: Spontaneous
  Country: US (occurrence: US)
  Receive Date: 20240913
  Receipt Date: 20240913
  Transmission Date: 20241017
  Serious: Yes (Death, Hospitalization, Other)
  Sender: HIKMA
  Company Number: US-HIKMA PHARMACEUTICALS-US-H14001-24-08397

PATIENT
  Age: 80 Year
  Sex: Male
  Weight: 77 kg

DRUGS (8)
  1. BRENTUXIMAB VEDOTIN [Suspect]
     Active Substance: BRENTUXIMAB VEDOTIN
     Indication: Peripheral T-cell lymphoma unspecified
     Dosage: 1.8 MILLIGRAM/KILOGRAM, 3W
     Route: 042
     Dates: start: 20220831, end: 20221012
  2. BRENTUXIMAB VEDOTIN [Suspect]
     Active Substance: BRENTUXIMAB VEDOTIN
     Dosage: 1.8 MILLIGRAM/KILOGRAM, 3W
     Route: 042
     Dates: end: 20221202
  3. CYCLOPHOSPHAMIDE [Suspect]
     Active Substance: CYCLOPHOSPHAMIDE
     Indication: Peripheral T-cell lymphoma unspecified
     Dosage: 750 MILLIGRAM/M2, ON DAY ONE OF EACH CYCLE
     Route: 042
     Dates: start: 20220831, end: 20221012
  4. CYCLOPHOSPHAMIDE [Suspect]
     Active Substance: CYCLOPHOSPHAMIDE
     Dosage: 750 MILLIGRAM/M2, ON DAY ONE OF EACH CYCLE
     Route: 042
     Dates: end: 20221202
  5. DOXORUBICIN [Suspect]
     Active Substance: DOXORUBICIN
     Indication: Peripheral T-cell lymphoma unspecified
     Dosage: 50 MILLIGRAM/M2, ON DAY ONE OF EACH CYCLE
     Route: 042
     Dates: start: 20220831, end: 20221012
  6. DOXORUBICIN [Suspect]
     Active Substance: DOXORUBICIN
     Dosage: 50 MILLIGRAM/M2, ON DAY ONE OF EACH CYCLE
     Route: 042
     Dates: end: 20221202
  7. PREDNISONE [Suspect]
     Active Substance: PREDNISONE
     Indication: Peripheral T-cell lymphoma unspecified
     Dosage: 100 MILLIGRAM, QD, DAYS ONE-FIVE EACH CYCLE
     Route: 048
     Dates: start: 20220831, end: 20221012
  8. PREDNISONE [Suspect]
     Active Substance: PREDNISONE
     Dosage: 100 MILLIGRAM, QD, DAYS ONE-FIVE EACH CYCLE
     Route: 048
     Dates: end: 20221202

REACTIONS (13)
  - Febrile neutropenia [Recovered/Resolved]
  - General physical health deterioration [Fatal]
  - Cognitive disorder [Fatal]
  - Ileal perforation [Recovered/Resolved]
  - Fall [Unknown]
  - Fracture [Unknown]
  - Hiccups [Unknown]
  - Posterior cortical atrophy [Unknown]
  - Haemoglobin decreased [Unknown]
  - Neutrophil count decreased [Unknown]
  - Platelet count decreased [Unknown]
  - White blood cell count decreased [Unknown]
  - C-reactive protein increased [Unknown]

NARRATIVE: CASE EVENT DATE: 20221019
